FAERS Safety Report 11529922 (Version 2)
Quarter: 2016Q2

REPORT INFORMATION
  Report Type: Spontaneous
  Country: US (occurrence: US)
  Receive Date: 20150921
  Receipt Date: 20160422
  Transmission Date: 20160815
  Serious: No
  Sender: FDA-Public Use
  Company Number: US-GLAXOSMITHKLINE-US2015GSK133543

PATIENT
  Sex: Male

DRUGS (2)
  1. TANZEUM [Suspect]
     Active Substance: ALBIGLUTIDE
     Indication: HYPOGLYCAEMIA
     Dosage: 50 MG, WE
     Dates: start: 201501
  2. TANZEUM [Suspect]
     Active Substance: ALBIGLUTIDE
     Indication: HYPERGLYCAEMIA

REACTIONS (7)
  - Device leakage [Unknown]
  - Medication error [Unknown]
  - Device use error [Unknown]
  - Blood glucose decreased [Unknown]
  - Intentional product use issue [Unknown]
  - Exposure via direct contact [Unknown]
  - Drug dose omission [Unknown]
